FAERS Safety Report 24811227 (Version 1)
Quarter: 2025Q1

REPORT INFORMATION
  Report Type: Spontaneous
  Country: GR (occurrence: GR)
  Receive Date: 20250106
  Receipt Date: 20250106
  Transmission Date: 20250409
  Serious: Yes (Other)
  Sender: TEVA
  Company Number: GR-SANDOZ-SDZ2024GR101786

PATIENT
  Sex: Female

DRUGS (1)
  1. EVEROLIMUS [Suspect]
     Active Substance: EVEROLIMUS
     Indication: Breast cancer
     Route: 065

REACTIONS (5)
  - Pneumonitis [Unknown]
  - Stomatitis [Unknown]
  - Diarrhoea [Unknown]
  - Dermatitis [Unknown]
  - Dyslipidaemia [Unknown]
